FAERS Safety Report 6046202-2 (Version None)
Quarter: 2009Q1

REPORT INFORMATION
  Report Type: 
  Country: None (occurrence: None)
  Receive Date: 20090121
  Receipt Date: 20090121
  Transmission Date: 20090719
  Serious: Yes (Other)
  Sender: FDA-Public Use
  Company Number: None

PATIENT
  Age: 46 Year
  Sex: Male
  Weight: 66.2252 kg

DRUGS (1)
  1. N-ACETYL-L-CYSTEINE 600 MG JARROW FORMULAS [Suspect]
     Indication: ANTIOXIDANT THERAPY
     Dosage: 600 MG 1 / DAY PO
     Route: 048
     Dates: start: 20080105, end: 20080117

REACTIONS (4)
  - ABDOMINAL DISCOMFORT [None]
  - ABDOMINAL PAIN UPPER [None]
  - DIARRHOEA HAEMORRHAGIC [None]
  - GASTRIC DISORDER [None]
